FAERS Safety Report 19685037 (Version 2)
Quarter: 2021Q3

REPORT INFORMATION
  Report Type: Spontaneous
  Country: US (occurrence: US)
  Receive Date: 20210811
  Receipt Date: 20210831
  Transmission Date: 20211014
  Serious: Yes (Hospitalization, Other)
  Sender: FDA-Public Use
  Company Number: US-JNJFOC-20210763847

PATIENT
  Age: 30 Year
  Sex: Male

DRUGS (1)
  1. NEUTROGENA COOL DRY SPORT SUNSCREEN BROAD SPECTRUM SPF 70 [Suspect]
     Active Substance: AVOBENZONE\HOMOSALATE\OCTISALATE\OCTOCRYLENE
     Indication: PROPHYLAXIS AGAINST SOLAR RADIATION
     Dosage: APPLIED ONCE BEFORE GOING OUT IN A COOL DRY PLACE AND LET SOAK IN AS WELL AS 2 MORE TIMES WHILE OUT
     Route: 061
     Dates: start: 20210725

REACTIONS (4)
  - Application site burn [Not Recovered/Not Resolved]
  - Drug ineffective [Unknown]
  - Burns third degree [Not Recovered/Not Resolved]
  - Furuncle [Not Recovered/Not Resolved]

NARRATIVE: CASE EVENT DATE: 20210725
